FAERS Safety Report 5852382-1 (Version None)
Quarter: 2008Q3

REPORT INFORMATION
  Report Type: 
  Country: None (occurrence: None)
  Receive Date: 20080819
  Receipt Date: 20080804
  Transmission Date: 20090109
  Serious: Yes (Death, Hospitalization)
  Sender: FDA-Public Use
  Company Number: KADN20080313

PATIENT
  Age: 74 Year
  Sex: Male

DRUGS (8)
  1. MORPHINE [Suspect]
     Dosage: ORAL
     Route: 048
     Dates: end: 20060101
  2. PROPOXYPHENE [Suspect]
     Dosage: ORAL
     Route: 048
     Dates: end: 20060101
  3. ACETAMINOPHEN [Suspect]
     Dosage: ORAL
     Route: 048
     Dates: end: 20060101
  4. CAFFEINE CITRATE [Suspect]
     Dosage: ORAL
     Route: 048
     Dates: end: 20060101
  5. PERPHENAZINE AND AMITRIPTYLINE HCL [Suspect]
     Dosage: ORAL
     Route: 048
     Dates: end: 20060101
  6. CLONAZEPAM [Suspect]
     Dosage: ORAL
     Route: 048
     Dates: end: 20060101
  7. VENLAFAXINE HCL [Suspect]
     Dosage: ORAL
     Route: 048
     Dates: end: 20060101
  8. CARBIDOPA AND LEVODOPA [Suspect]
     Dosage: ORAL
     Route: 048
     Dates: end: 20060101

REACTIONS (13)
  - BLOOD CREATININE INCREASED [None]
  - BLOOD UREA INCREASED [None]
  - BODY TEMPERATURE DECREASED [None]
  - CARDIO-RESPIRATORY ARREST [None]
  - COMPLETED SUICIDE [None]
  - ELECTROCARDIOGRAM QRS COMPLEX PROLONGED [None]
  - HEPATIC ENZYME ABNORMAL [None]
  - HYPOTENSION [None]
  - LUNG DISORDER [None]
  - MYOCARDIAL INFARCTION [None]
  - PUPIL FIXED [None]
  - SPLEEN CONGESTION [None]
  - UNRESPONSIVE TO STIMULI [None]
